FAERS Safety Report 5233793-4 (Version None)
Quarter: 2007Q1

REPORT INFORMATION
  Report Type: 
  Country: None (occurrence: None)
  Receive Date: 20061208
  Receipt Date: 20060714
  Transmission Date: 20070707
  Serious: Yes (Other)
  Sender: FDA-Public Use
  Company Number: 2006UW14486

PATIENT
  Age: 68 Year
  Sex: Female
  Weight: 72.574 kg

DRUGS (5)
  1. CRESTOR [Suspect]
     Indication: BLOOD CHOLESTEROL INCREASED
     Dosage: 10 MG ONCE
     Dates: start: 20060713
  2. MEDROL [Concomitant]
  3. ZOLOFT [Concomitant]
  4. ARIMIDEX [Concomitant]
  5. FLEXERIL [Concomitant]

REACTIONS (2)
  - DIZZINESS [None]
  - TREMOR [None]
